FAERS Safety Report 6996862-4 (Version None)
Quarter: 2010Q3

REPORT INFORMATION
  Report Type: 
  Country: None (occurrence: None)
  Receive Date: 20100918
  Receipt Date: 20090727
  Transmission Date: 20110219
  Serious: No
  Sender: FDA-Public Use
  Company Number: US-WYE-H10340109

PATIENT
  Sex: Female
  Weight: 90.8 kg

DRUGS (8)
  1. EFFEXOR XR [Suspect]
     Indication: DEPRESSION
     Route: 048
     Dates: end: 20090401
  2. EFFEXOR XR [Suspect]
     Route: 048
     Dates: start: 20090401
  3. EFFEXOR XR [Suspect]
     Dosage: UNKNOWN DOSE
     Dates: start: 20010101
  4. EFFEXOR XR [Suspect]
     Dosage: HIGHEST DOSE WAS 500 MG/DAY
     Route: 048
  5. LEVOXYL [Concomitant]
  6. FOLIC ACID [Concomitant]
  7. KLONOPIN [Concomitant]
  8. COUMADIN [Concomitant]

REACTIONS (6)
  - DECREASED APPETITE [None]
  - DRUG WITHDRAWAL SYNDROME [None]
  - DRY MOUTH [None]
  - HALLUCINATION [None]
  - PANIC ATTACK [None]
  - THINKING ABNORMAL [None]
